FAERS Safety Report 17988727 (Version 1)
Quarter: 2020Q3

REPORT INFORMATION
  Report Type: Spontaneous
  Country: GB (occurrence: GB)
  Receive Date: 20200707
  Receipt Date: 20200707
  Transmission Date: 20201103
  Serious: Yes (Other)
  Sender: FDA-Public Use
  Company Number: GB-BAYER-2020-131874

PATIENT
  Age: 69 Year
  Sex: Male

DRUGS (1)
  1. IOPROMIDE. [Suspect]
     Active Substance: IOPROMIDE
     Indication: COMPUTERISED TOMOGRAM
     Dosage: UNK UNK, ONCE
     Dates: start: 201903, end: 201903

REACTIONS (1)
  - Sialoadenitis [Recovered/Resolved]

NARRATIVE: CASE EVENT DATE: 201903
